FAERS Safety Report 8273136-5 (Version None)
Quarter: 2012Q2

REPORT INFORMATION
  Report Type: 
  Country: None (occurrence: None)
  Receive Date: 20120411
  Receipt Date: 20120404
  Transmission Date: 20120825
  Serious: Yes (Other)
  Sender: FDA-Public Use
  Company Number: NL-JNJFOC-20120402696

PATIENT

DRUGS (12)
  1. STATINS [Concomitant]
     Route: 065
  2. NITROGLYCERIN [Concomitant]
     Route: 065
  3. HEPARIN SODIUM [Suspect]
     Indication: PERCUTANEOUS CORONARY INTERVENTION
     Route: 040
  4. ANGIOTENSIN-CONVERTING ENZYME INHIBITORS [Concomitant]
     Route: 065
  5. CLOPIDOGREL [Suspect]
     Indication: PERCUTANEOUS CORONARY INTERVENTION
     Route: 065
  6. CLOPIDOGREL [Suspect]
     Route: 065
  7. ASPIRIN [Suspect]
     Route: 065
  8. SIROLIMUS [Suspect]
     Indication: CORONARY ARTERIAL STENT INSERTION
     Route: 065
  9. BETA BLOCKERS, NOS [Concomitant]
     Route: 065
  10. REOPRO [Suspect]
     Indication: PERCUTANEOUS CORONARY INTERVENTION
     Route: 042
  11. REOPRO [Suspect]
     Route: 042
  12. ASPIRIN [Suspect]
     Indication: PERCUTANEOUS CORONARY INTERVENTION
     Route: 065

REACTIONS (4)
  - CATHETER SITE HAEMORRHAGE [None]
  - THROMBOSIS IN DEVICE [None]
  - GASTROINTESTINAL HAEMORRHAGE [None]
  - HAEMORRHAGE [None]
